FAERS Safety Report 16100287 (Version 1)
Quarter: 2019Q1

REPORT INFORMATION
  Report Type: Spontaneous
  Country: US (occurrence: US)
  Receive Date: 20190321
  Receipt Date: 20190321
  Transmission Date: 20190418
  Serious: No
  Sender: FDA-Public Use
  Company Number: US-FERRINGPH-2019FE00969

PATIENT
  Age: 27 Year
  Sex: Female

DRUGS (1)
  1. CLENPIQ [Suspect]
     Active Substance: ANHYDROUS CITRIC ACID\MAGNESIUM OXIDE\SODIUM PICOSULFATE
     Indication: BOWEL PREPARATION
     Dosage: 1 BOTTLE, ONCE/SINGLE
     Route: 065
     Dates: start: 20190215, end: 20190215

REACTIONS (3)
  - Weight increased [Unknown]
  - Throat irritation [Unknown]
  - Generalised oedema [Unknown]

NARRATIVE: CASE EVENT DATE: 201902
